FAERS Safety Report 20098473 (Version 3)
Quarter: 2021Q4

REPORT INFORMATION
  Report Type: Spontaneous
  Country: AT (occurrence: None)
  Receive Date: 20211122
  Receipt Date: 20211130
  Transmission Date: 20220304
  Serious: Yes (Other)
  Sender: FDA-Public Use
  Company Number: 2021A811685

PATIENT
  Age: 57 Year
  Sex: Female

DRUGS (8)
  1. IMFINZI [Suspect]
     Active Substance: DURVALUMAB
     Indication: Small cell lung cancer
     Dosage: DURVALUMAB1500MG ABSOLUTE D1, REPEAT EVERY 21 DAYS, SYSTEM THERAPY
     Route: 042
     Dates: start: 20201228
  2. CISPLATIN [Concomitant]
     Active Substance: CISPLATIN
     Dosage: 75MG / M2 BSA D1, REPEAT EVERY 21 DAYS, SYSTEM THERAPY
     Route: 065
     Dates: start: 20201228
  3. ETOPOSIDE [Concomitant]
     Active Substance: ETOPOSIDE
     Dosage: 100MG / M2 D1-D3, REPEAT EVERY 21 DAYS, SYSTEM THERAPY
     Route: 065
     Dates: start: 20201228
  4. LEVETIRACETAM [Concomitant]
     Active Substance: LEVETIRACETAM
     Dosage: 1000 MG 1-0-1
     Route: 065
  5. DEXAMETHASONE [Concomitant]
     Active Substance: DEXAMETHASONE
     Dosage: 4 MG 1/2 0 0
     Route: 065
  6. PANTOPRAZOLE [Concomitant]
     Active Substance: PANTOPRAZOLE
     Route: 065
  7. MOVICOL [Concomitant]
     Active Substance: POLYETHYLENE GLYCOL 3350\POTASSIUM CHLORIDE\SODIUM BICARBONATE\SODIUM CHLORIDE
     Route: 065
  8. ACETAMINOPHEN [Concomitant]
     Active Substance: ACETAMINOPHEN
     Indication: Pain
     Dosage: 500.0MG UNKNOWN
     Route: 065

REACTIONS (1)
  - Malignant neoplasm progression [Unknown]
